FAERS Safety Report 4413830-7 (Version None)
Quarter: 2004Q3

REPORT INFORMATION
  Report Type: 
  Country: None (occurrence: None)
  Receive Date: 20040728
  Receipt Date: 20040720
  Transmission Date: 20050211
  Serious: Yes (Other)
  Sender: FDA-Public Use
  Company Number: KII-2001-0012390

PATIENT
  Sex: Male

DRUGS (1)
  1. OXYIR(OXYCODONE HYDROCHLORIDE) [Suspect]

REACTIONS (4)
  - LOSS OF CONSCIOUSNESS [None]
  - MUSCLE CONTRACTURE [None]
  - OVERDOSE [None]
  - POSTURE ABNORMAL [None]
